FAERS Safety Report 8843873 (Version 1)
Quarter: 2012Q4

REPORT INFORMATION
  Report Type: 
  Country: US (occurrence: US)
  Receive Date: 20121016
  Receipt Date: 20121016
  Transmission Date: 20130627
  Serious: No
  Sender: FDA-Public Use
  Company Number: US-PFIZER INC-2012250692

PATIENT
  Age: 53 Year
  Sex: Female
  Weight: 58.96 kg

DRUGS (5)
  1. BOSULIF [Suspect]
     Indication: CHRONIC MYELOID LEUKAEMIA
     Dosage: 500 mg, daily
     Dates: start: 20121005
  2. SPRYCEL [Suspect]
     Indication: CHRONIC MYELOID LEUKAEMIA
     Dosage: UNK, five days a week
     Dates: start: 201201
  3. SPRYCEL [Suspect]
     Dosage: UNK, every other day
  4. SPRYCEL [Suspect]
     Dosage: 350 mg, 2x/day
     Dates: end: 201207
  5. TASIGNA [Suspect]
     Indication: CHRONIC MYELOID LEUKAEMIA
     Dosage: UNK, 2x/day
     Dates: start: 201207, end: 20120920

REACTIONS (6)
  - Disease progression [Unknown]
  - Chronic myeloid leukaemia [Unknown]
  - Platelet count decreased [Unknown]
  - Blood count abnormal [Unknown]
  - Diarrhoea [Not Recovered/Not Resolved]
  - Nausea [Not Recovered/Not Resolved]
